FAERS Safety Report 21247723 (Version 1)
Quarter: 2022Q3

REPORT INFORMATION
  Report Type: Spontaneous
  Country: US (occurrence: None)
  Receive Date: 20220824
  Receipt Date: 20220824
  Transmission Date: 20221027
  Serious: No
  Sender: FDA-Public Use
  Company Number: US-Emmaus Medical, Inc.-EMM202108-000127

PATIENT
  Sex: Male

DRUGS (2)
  1. ENDARI [Suspect]
     Active Substance: GLUTAMINE
     Indication: Sickle cell disease
     Route: 048
     Dates: start: 20210708
  2. HYDROXYUREA [Concomitant]
     Active Substance: HYDROXYUREA
     Indication: Cardiovascular disorder

REACTIONS (2)
  - Urinary incontinence [Unknown]
  - Diarrhoea [Unknown]
